FAERS Safety Report 9184988 (Version 2)
Quarter: 2013Q2

REPORT INFORMATION
  Report Type: Spontaneous
  Country: US (occurrence: US)
  Receive Date: 20130325
  Receipt Date: 20130624
  Transmission Date: 20140414
  Serious: Yes (Death)
  Sender: FDA-Public Use
  Company Number: US-JNJFOC-20130312149

PATIENT
  Age: 71 Year
  Sex: Male
  Weight: 107.96 kg

DRUGS (9)
  1. RIVAROXABAN [Suspect]
     Indication: KNEE ARTHROPLASTY
     Route: 048
     Dates: start: 20121112, end: 20121113
  2. RIVAROXABAN [Suspect]
     Indication: THROMBOSIS PROPHYLAXIS
     Route: 048
     Dates: start: 20121112, end: 20121113
  3. OXYCONTIN [Concomitant]
     Indication: PAIN
     Dosage: DATES OF THERAPY: 12-NOV AT 21:32 AND 13-NOV AT 8:56
     Route: 048
     Dates: start: 20121112, end: 20121113
  4. HYDROCODONE APAP [Concomitant]
     Indication: PAIN
     Dosage: DOSE: 7.5MG/325 MG, DATES OF THERAPY: 12-NOV AT 18:40
     Route: 048
     Dates: start: 20121112
  5. HYDROMORPHONE [Concomitant]
     Indication: PAIN
     Dosage: DATES OF THERAPY: 12-NOV AT 20:13 AND 13-NOV
     Route: 065
     Dates: start: 20121112, end: 20121113
  6. KETOROLAC [Concomitant]
     Indication: INFLAMMATION
     Dosage: DATES OF THERAPY: 13-NOV AT 08:56
     Route: 065
     Dates: start: 20121113
  7. KETOROLAC [Concomitant]
     Indication: PAIN
     Dosage: DATES OF THERAPY: 13-NOV AT 08:56
     Route: 065
     Dates: start: 20121113
  8. CELECOXIB [Concomitant]
     Indication: INFLAMMATION
     Dosage: DOSE: 400 MG POST SURGERY
     Route: 065
     Dates: start: 20121112
  9. CELECOXIB [Concomitant]
     Indication: PAIN
     Dosage: DOSE: 400 MG POST SURGERY
     Route: 065
     Dates: start: 20121112

REACTIONS (6)
  - Pulmonary embolism [Fatal]
  - Bundle branch block right [Unknown]
  - Electrocardiogram abnormal [Unknown]
  - Haematocrit decreased [Unknown]
  - Haemoglobin decreased [Unknown]
  - Blood glucose abnormal [Unknown]
